FAERS Safety Report 23550303 (Version 2)
Quarter: 2024Q1

REPORT INFORMATION
  Report Type: Spontaneous
  Country: CA (occurrence: CA)
  Receive Date: 20240221
  Receipt Date: 20240226
  Transmission Date: 20240410
  Serious: Yes (Death, Other)
  Sender: FDA-Public Use
  Company Number: CA-002147023-NVSC2024CA035535

PATIENT

DRUGS (242)
  1. DICLOFENAC SODIUM [Suspect]
     Active Substance: DICLOFENAC\DICLOFENAC SODIUM
     Indication: Foetal exposure during pregnancy
     Dosage: MATERNAL EXPOSURE DURING PREGNANCY: UNK
     Route: 065
  2. ABACAVIR SULFATE [Suspect]
     Active Substance: ABACAVIR SULFATE
     Indication: Foetal exposure during pregnancy
     Dosage: MATERNAL EXPOSURE DURING PREGNANCY: UNK
     Route: 065
  3. RITUXIMAB [Suspect]
     Active Substance: RITUXIMAB
     Indication: Foetal exposure during pregnancy
     Dosage: MATERNAL EXPOSURE DURING PREGNANCY: 1000 MG, QD
     Route: 064
  4. RITUXIMAB [Suspect]
     Active Substance: RITUXIMAB
     Dosage: MATERNAL EXPOSURE DURING PREGNANCY: 1000 MG
     Route: 064
  5. RITUXIMAB [Suspect]
     Active Substance: RITUXIMAB
     Dosage: MATERNAL EXPOSURE DURING PREGNANCY: 1000 MG, QD
     Route: 064
  6. RITUXIMAB [Suspect]
     Active Substance: RITUXIMAB
     Dosage: MATERNAL EXPOSURE DURING PREGNANCY: 1000 MG
     Route: 064
  7. RITUXIMAB [Suspect]
     Active Substance: RITUXIMAB
     Dosage: MATERNAL EXPOSURE DURING PREGNANCY: 1000 MG, QD
     Route: 064
  8. RITUXIMAB [Suspect]
     Active Substance: RITUXIMAB
     Dosage: MATERNAL EXPOSURE DURING PREGNANCY: 1000 MG, QD
     Route: 064
  9. RITUXIMAB [Suspect]
     Active Substance: RITUXIMAB
     Dosage: MATERNAL EXPOSURE DURING PREGNANCY: 1000 MG, QD
     Route: 064
  10. RITUXIMAB [Suspect]
     Active Substance: RITUXIMAB
     Dosage: MATERNAL EXPOSURE DURING PREGNANCY: 1000 MG, QD
     Route: 064
  11. RITUXIMAB [Suspect]
     Active Substance: RITUXIMAB
     Dosage: MATERNAL EXPOSURE DURING PREGNANCY: 1000 MG, QD
     Route: 064
  12. RITUXIMAB [Suspect]
     Active Substance: RITUXIMAB
     Dosage: MATERNAL EXPOSURE DURING PREGNANCY: 1000 MG, QD
     Route: 064
  13. RITUXIMAB [Suspect]
     Active Substance: RITUXIMAB
     Dosage: MATERNAL EXPOSURE DURING PREGNANCY: 1000 MG
     Route: 064
  14. RITUXIMAB [Suspect]
     Active Substance: RITUXIMAB
     Dosage: MATERNAL EXPOSURE DURING PREGNANCY: 1000 MG, QD
     Route: 064
  15. RITUXIMAB [Suspect]
     Active Substance: RITUXIMAB
     Dosage: MATERNAL EXPOSURE DURING PREGNANCY: 1000 MG
     Route: 064
  16. RITUXIMAB [Suspect]
     Active Substance: RITUXIMAB
     Dosage: MATERNAL EXPOSURE DURING PREGNANCY: UNK
     Route: 065
  17. RITUXIMAB [Suspect]
     Active Substance: RITUXIMAB
     Dosage: MATERNAL EXPOSURE DURING PREGNANCY: 1000 MG
     Route: 064
  18. ABACAVIR\LAMIVUDINE [Suspect]
     Active Substance: ABACAVIR\LAMIVUDINE
     Indication: Foetal exposure during pregnancy
     Dosage: MATERNAL EXPOSURE DURING PREGNANCY: UNK
     Route: 065
  19. ACETAMINOPHEN [Suspect]
     Active Substance: ACETAMINOPHEN
     Indication: Foetal exposure during pregnancy
     Dosage: MATERNAL EXPOSURE DURING PREGNANCY: UNK
     Route: 065
  20. ACTEMRA [Suspect]
     Active Substance: TOCILIZUMAB
     Indication: Foetal exposure during pregnancy
     Dosage: MATERNAL EXPOSURE DURING PREGNANCY: 500 MG, QD
     Route: 064
  21. ACTEMRA [Suspect]
     Active Substance: TOCILIZUMAB
     Dosage: MATERNAL EXPOSURE DURING PREGNANCY: 500 MG
     Route: 064
  22. ACTEMRA [Suspect]
     Active Substance: TOCILIZUMAB
     Dosage: MATERNAL EXPOSURE DURING PREGNANCY: 500 MG, BID
     Route: 064
  23. ACTEMRA [Suspect]
     Active Substance: TOCILIZUMAB
     Dosage: MATERNAL EXPOSURE DURING PREGNANCY: 500 MG, QD
     Route: 064
  24. ACTEMRA [Suspect]
     Active Substance: TOCILIZUMAB
     Dosage: MATERNAL EXPOSURE DURING PREGNANCY: 500 MG, BID
     Route: 064
  25. ACTEMRA [Suspect]
     Active Substance: TOCILIZUMAB
     Dosage: MATERNAL EXPOSURE DURING PREGNANCY: 500 MG, BID
     Route: 064
  26. ACTEMRA [Suspect]
     Active Substance: TOCILIZUMAB
     Dosage: MATERNAL EXPOSURE DURING PREGNANCY: 500 MG, BID
     Route: 064
  27. ACTEMRA [Suspect]
     Active Substance: TOCILIZUMAB
     Dosage: MATERNAL EXPOSURE DURING PREGNANCY: 500 MG, BID
     Route: 064
  28. ACTEMRA [Suspect]
     Active Substance: TOCILIZUMAB
     Dosage: MATERNAL EXPOSURE DURING PREGNANCY: 1000 MG
     Route: 064
  29. ACTEMRA [Suspect]
     Active Substance: TOCILIZUMAB
     Dosage: MATERNAL EXPOSURE DURING PREGNANCY: 500 MG (1 EVERY 2 DAYS)
     Route: 064
  30. ACTEMRA [Suspect]
     Active Substance: TOCILIZUMAB
     Dosage: MATERNAL EXPOSURE DURING PREGNANCY: 100 MG, QD (UNKNOWN FORMULATION)
     Route: 064
  31. ACTEMRA [Suspect]
     Active Substance: TOCILIZUMAB
     Dosage: MATERNAL EXPOSURE DURING PREGNANCY: UNK
     Route: 065
  32. ADVAIR HFA [Suspect]
     Active Substance: FLUTICASONE PROPIONATE\SALMETEROL XINAFOATE
     Indication: Foetal exposure during pregnancy
     Dosage: MATERNAL EXPOSURE DURING PREGNANCY: 500 MG, QD
     Route: 065
  33. ADVAIR HFA [Suspect]
     Active Substance: FLUTICASONE PROPIONATE\SALMETEROL XINAFOATE
     Dosage: MATERNAL EXPOSURE DURING PREGNANCY: 500 MG, BID
     Route: 065
  34. ADVAIR HFA [Suspect]
     Active Substance: FLUTICASONE PROPIONATE\SALMETEROL XINAFOATE
     Dosage: MATERNAL EXPOSURE DURING PREGNANCY: 500 MG, BID
     Route: 065
  35. ADVAIR HFA [Suspect]
     Active Substance: FLUTICASONE PROPIONATE\SALMETEROL XINAFOATE
     Dosage: MATERNAL EXPOSURE DURING PREGNANCY: 500 MG, QD
     Route: 065
  36. ADVAIR HFA [Suspect]
     Active Substance: FLUTICASONE PROPIONATE\SALMETEROL XINAFOATE
     Dosage: MATERNAL EXPOSURE DURING PREGNANCY: 500 MG, BID
     Route: 065
  37. ADVAIR HFA [Suspect]
     Active Substance: FLUTICASONE PROPIONATE\SALMETEROL XINAFOATE
     Dosage: MATERNAL EXPOSURE DURING PREGNANCY: 500 MG, BID
     Route: 065
  38. ADVAIR HFA [Suspect]
     Active Substance: FLUTICASONE PROPIONATE\SALMETEROL XINAFOATE
     Dosage: MATERNAL EXPOSURE DURING PREGNANCY: 500 MG
     Route: 065
  39. ADVAIR HFA [Suspect]
     Active Substance: FLUTICASONE PROPIONATE\SALMETEROL XINAFOATE
     Dosage: MATERNAL EXPOSURE DURING PREGNANCY: 500 MG
     Route: 065
  40. ADVAIR HFA [Suspect]
     Active Substance: FLUTICASONE PROPIONATE\SALMETEROL XINAFOATE
     Dosage: MATERNAL EXPOSURE DURING PREGNANCY: 500 MG
     Route: 065
  41. ADVAIR HFA [Suspect]
     Active Substance: FLUTICASONE PROPIONATE\SALMETEROL XINAFOATE
     Dosage: MATERNAL EXPOSURE DURING PREGNANCY: 500 MG, QD
     Route: 065
  42. ADVAIR HFA [Suspect]
     Active Substance: FLUTICASONE PROPIONATE\SALMETEROL XINAFOATE
     Dosage: MATERNAL EXPOSURE DURING PREGNANCY: 500 MG, QD
     Route: 065
  43. ADVAIR HFA [Suspect]
     Active Substance: FLUTICASONE PROPIONATE\SALMETEROL XINAFOATE
     Dosage: MATERNAL EXPOSURE DURING PREGNANCY: 500 MG, BID
     Route: 065
  44. ADVAIR HFA [Suspect]
     Active Substance: FLUTICASONE PROPIONATE\SALMETEROL XINAFOATE
     Dosage: MATERNAL EXPOSURE DURING PREGNANCY: 500 MG
     Route: 065
  45. ADVAIR HFA [Suspect]
     Active Substance: FLUTICASONE PROPIONATE\SALMETEROL XINAFOATE
     Dosage: MATERNAL EXPOSURE DURING PREGNANCY: 500 MG
     Route: 065
  46. ADVAIR HFA [Suspect]
     Active Substance: FLUTICASONE PROPIONATE\SALMETEROL XINAFOATE
     Dosage: MATERNAL EXPOSURE DURING PREGNANCY: 500 MG, BID
     Route: 065
  47. ALBUTEROL SULFATE [Suspect]
     Active Substance: ALBUTEROL SULFATE
     Indication: Foetal exposure during pregnancy
     Dosage: MATERNAL EXPOSURE DURING PREGNANCY: UNK
     Route: 065
  48. ALBUTEROL SULFATE [Suspect]
     Active Substance: ALBUTEROL SULFATE
     Dosage: MATERNAL EXPOSURE DURING PREGNANCY: UNK
     Route: 065
  49. ALBUTEROL SULFATE [Suspect]
     Active Substance: ALBUTEROL SULFATE
     Dosage: MATERNAL EXPOSURE DURING PREGNANCY: UNK
     Route: 065
  50. ALBUTEROL SULFATE [Suspect]
     Active Substance: ALBUTEROL SULFATE
     Dosage: MATERNAL EXPOSURE DURING PREGNANCY: UNK
     Route: 065
  51. ALBUTEROL SULFATE [Suspect]
     Active Substance: ALBUTEROL SULFATE
     Dosage: MATERNAL EXPOSURE DURING PREGNANCY: UNK
     Route: 065
  52. ALBUTEROL SULFATE [Suspect]
     Active Substance: ALBUTEROL SULFATE
     Dosage: MATERNAL EXPOSURE DURING PREGNANCY: UNK (FORMULATION: METERED-DOSE (AEROSOL))
     Route: 065
  53. ALBUTEROL [Suspect]
     Active Substance: ALBUTEROL
     Indication: Foetal exposure during pregnancy
     Dosage: MATERNAL EXPOSURE DURING PREGNANCY: UNK
     Route: 065
  54. ALBUTEROL [Suspect]
     Active Substance: ALBUTEROL
     Dosage: MATERNAL EXPOSURE DURING PREGNANCY: UNK
     Route: 065
  55. PANTOPRAZOLE SODIUM ANHYDROUS [Suspect]
     Active Substance: PANTOPRAZOLE SODIUM ANHYDROUS
     Indication: Foetal exposure during pregnancy
     Dosage: MATERNAL EXPOSURE DURING PREGNANCY: UNK
     Route: 065
  56. NORTRIPTYLINE [Suspect]
     Active Substance: NORTRIPTYLINE
     Indication: Foetal exposure during pregnancy
     Dosage: MATERNAL EXPOSURE DURING PREGNANCY: 10 MG
     Route: 065
  57. NORTRIPTYLINE [Suspect]
     Active Substance: NORTRIPTYLINE
     Dosage: MATERNAL EXPOSURE DURING PREGNANCY: 10 MG
     Route: 065
  58. NORTRIPTYLINE [Suspect]
     Active Substance: NORTRIPTYLINE
     Dosage: MATERNAL EXPOSURE DURING PREGNANCY: 10 MG
     Route: 065
  59. DIETARY SUPPLEMENT [Suspect]
     Active Substance: DIETARY SUPPLEMENT
     Indication: Foetal exposure during pregnancy
     Dosage: MATERNAL EXPOSURE DURING PREGNANCY: UNK
     Route: 065
  60. DIETARY SUPPLEMENT [Suspect]
     Active Substance: DIETARY SUPPLEMENT
     Dosage: MATERNAL EXPOSURE DURING PREGNANCY: UNK
     Route: 065
  61. DIETARY SUPPLEMENT [Suspect]
     Active Substance: DIETARY SUPPLEMENT
     Dosage: MATERNAL EXPOSURE DURING PREGNANCY: UNK
     Route: 065
  62. DIETARY SUPPLEMENT [Suspect]
     Active Substance: DIETARY SUPPLEMENT
     Indication: Foetal exposure during pregnancy
     Dosage: MATERNAL EXPOSURE DURING PREGNANCY: UNK
     Route: 065
  63. DIETARY SUPPLEMENT [Suspect]
     Active Substance: DIETARY SUPPLEMENT
     Dosage: MATERNAL EXPOSURE DURING PREGNANCY: UNK
     Route: 065
  64. BUPROPION [Suspect]
     Active Substance: BUPROPION
     Indication: Foetal exposure during pregnancy
     Dosage: MATERNAL EXPOSURE DURING PREGNANCY: UNK
     Route: 065
  65. BUPROPION HYDROCHLORIDE [Suspect]
     Active Substance: BUPROPION HYDROCHLORIDE
     Indication: Foetal exposure during pregnancy
     Dosage: MATERNAL EXPOSURE DURING PREGNANCY: UNK (FORMULATION: UNKNOWN)
     Route: 065
  66. BUPROPION HYDROCHLORIDE [Suspect]
     Active Substance: BUPROPION HYDROCHLORIDE
     Dosage: MATERNAL EXPOSURE DURING PREGNANCY: 150 MG
     Route: 065
  67. BUPROPION HYDROCHLORIDE [Suspect]
     Active Substance: BUPROPION HYDROCHLORIDE
     Dosage: MATERNAL EXPOSURE DURING PREGNANCY: 150 MG
     Route: 065
  68. BUPROPION HYDROCHLORIDE [Suspect]
     Active Substance: BUPROPION HYDROCHLORIDE
     Dosage: MATERNAL EXPOSURE DURING PREGNANCY: 150 MG
     Route: 065
  69. BUPROPION HYDROCHLORIDE [Suspect]
     Active Substance: BUPROPION HYDROCHLORIDE
     Dosage: MATERNAL EXPOSURE DURING PREGNANCY: UNK (FORMULATION: UNKNOWN)
     Route: 065
  70. CETIRIZINE HYDROCHLORIDE [Suspect]
     Active Substance: CETIRIZINE HYDROCHLORIDE
     Indication: Foetal exposure during pregnancy
     Dosage: MATERNAL EXPOSURE DURING PREGNANCY: 20 MG, QD (UNKNOWN FORMULATION)
     Route: 065
  71. CETIRIZINE HYDROCHLORIDE [Suspect]
     Active Substance: CETIRIZINE HYDROCHLORIDE
     Dosage: MATERNAL EXPOSURE DURING PREGNANCY: 20 MG, QD
     Route: 065
  72. CETIRIZINE HYDROCHLORIDE [Suspect]
     Active Substance: CETIRIZINE HYDROCHLORIDE
     Dosage: MATERNAL EXPOSURE DURING PREGNANCY: 20 MG, QD
     Route: 065
  73. CETIRIZINE HYDROCHLORIDE [Suspect]
     Active Substance: CETIRIZINE HYDROCHLORIDE
     Dosage: MATERNAL EXPOSURE DURING PREGNANCY: 20 MG
     Route: 065
  74. CETIRIZINE HYDROCHLORIDE [Suspect]
     Active Substance: CETIRIZINE HYDROCHLORIDE
     Dosage: MATERNAL EXPOSURE DURING PREGNANCY: 20 MG, QD
     Route: 065
  75. CETIRIZINE HYDROCHLORIDE [Suspect]
     Active Substance: CETIRIZINE HYDROCHLORIDE
     Dosage: MATERNAL EXPOSURE DURING PREGNANCY: 20 MG, QD
     Route: 065
  76. CETIRIZINE HYDROCHLORIDE [Suspect]
     Active Substance: CETIRIZINE HYDROCHLORIDE
     Dosage: MATERNAL EXPOSURE DURING PREGNANCY: 20 MG, QD
     Route: 065
  77. CETIRIZINE HYDROCHLORIDE [Suspect]
     Active Substance: CETIRIZINE HYDROCHLORIDE
     Dosage: MATERNAL EXPOSURE DURING PREGNANCY: 20 MG, QD
     Route: 065
  78. CHLORMEZANONE [Suspect]
     Active Substance: CHLORMEZANONE
     Indication: Foetal exposure during pregnancy
     Dosage: MATERNAL EXPOSURE DURING PREGNANCY: UNK
     Route: 065
  79. CHLORMEZANONE [Suspect]
     Active Substance: CHLORMEZANONE
     Dosage: MATERNAL EXPOSURE DURING PREGNANCY: UNK (UNKNOWN FORMULATION)
     Route: 065
  80. CITALOPRAM HYDROBROMIDE [Suspect]
     Active Substance: CITALOPRAM HYDROBROMIDE
     Indication: Foetal exposure during pregnancy
     Dosage: MATERNAL EXPOSURE DURING PREGNANCY: UNK
     Route: 065
  81. CITALOPRAM HYDROBROMIDE [Suspect]
     Active Substance: CITALOPRAM HYDROBROMIDE
     Dosage: MATERNAL EXPOSURE DURING PREGNANCY: UNK
     Route: 065
  82. CITALOPRAM HYDROBROMIDE [Suspect]
     Active Substance: CITALOPRAM HYDROBROMIDE
     Dosage: MATERNAL EXPOSURE DURING PREGNANCY: UNK
     Route: 065
  83. CLONIDINE [Suspect]
     Active Substance: CLONIDINE
     Indication: Foetal exposure during pregnancy
     Dosage: MATERNAL EXPOSURE DURING PREGNANCY: UNK
     Route: 065
  84. CLONIDINE [Suspect]
     Active Substance: CLONIDINE
     Dosage: MATERNAL EXPOSURE DURING PREGNANCY: UNK
     Route: 065
  85. CLONIDINE [Suspect]
     Active Substance: CLONIDINE
     Dosage: MATERNAL EXPOSURE DURING PREGNANCY: UNK
     Route: 065
  86. CLONIDINE HYDROCHLORIDE [Suspect]
     Active Substance: CLONIDINE HYDROCHLORIDE
     Indication: Foetal exposure during pregnancy
     Dosage: MATERNAL EXPOSURE DURING PREGNANCY: UNK
     Route: 065
  87. CLONIDINE HYDROCHLORIDE [Suspect]
     Active Substance: CLONIDINE HYDROCHLORIDE
     Dosage: MATERNAL EXPOSURE DURING PREGNANCY: UNK
     Route: 065
  88. CODEINE [Suspect]
     Active Substance: CODEINE
     Indication: Foetal exposure during pregnancy
     Dosage: MATERNAL EXPOSURE DURING PREGNANCY: UNK
     Route: 065
  89. CODEINE [Suspect]
     Active Substance: CODEINE
     Dosage: MATERNAL EXPOSURE DURING PREGNANCY: UNK
     Route: 065
  90. CRINONE [Suspect]
     Active Substance: PROGESTERONE
     Indication: Foetal exposure during pregnancy
     Dosage: MATERNAL EXPOSURE DURING PREGNANCY: UNK
     Route: 065
  91. CYCLOBENZAPRINE [Suspect]
     Active Substance: CYCLOBENZAPRINE
     Indication: Foetal exposure during pregnancy
     Dosage: MATERNAL EXPOSURE DURING PREGNANCY: UNK
     Route: 064
  92. CYCLOBENZAPRINE HYDROCHLORIDE [Suspect]
     Active Substance: CYCLOBENZAPRINE HYDROCHLORIDE
     Indication: Foetal exposure during pregnancy
     Dosage: MATERNAL EXPOSURE DURING PREGNANCY: UNK
     Route: 065
  93. CYCLOBENZAPRINE HYDROCHLORIDE [Suspect]
     Active Substance: CYCLOBENZAPRINE HYDROCHLORIDE
     Dosage: MATERNAL EXPOSURE DURING PREGNANCY: UNK
     Route: 065
  94. DEMEROL [Suspect]
     Active Substance: MEPERIDINE HYDROCHLORIDE
     Indication: Foetal exposure during pregnancy
     Dosage: MATERNAL EXPOSURE DURING PREGNANCY: UNK
     Route: 065
  95. DIPHENHYDRAMINE [Suspect]
     Active Substance: DIPHENHYDRAMINE
     Indication: Foetal exposure during pregnancy
     Dosage: MATERNAL EXPOSURE DURING PREGNANCY: 75 MG
     Route: 065
  96. DIPHENHYDRAMINE [Suspect]
     Active Substance: DIPHENHYDRAMINE
     Dosage: MATERNAL EXPOSURE DURING PREGNANCY: 75 MG, QD
     Route: 065
  97. DIPHENHYDRAMINE [Suspect]
     Active Substance: DIPHENHYDRAMINE
     Dosage: MATERNAL EXPOSURE DURING PREGNANCY: 75 MG
     Route: 065
  98. DIPHENHYDRAMINE [Suspect]
     Active Substance: DIPHENHYDRAMINE
     Dosage: MATERNAL EXPOSURE DURING PREGNANCY: 75 MG, QD
     Route: 065
  99. DIPHENHYDRAMINE [Suspect]
     Active Substance: DIPHENHYDRAMINE
     Dosage: MATERNAL EXPOSURE DURING PREGNANCY: UNK
     Route: 065
  100. DIPHENHYDRAMINE [Suspect]
     Active Substance: DIPHENHYDRAMINE
     Dosage: MATERNAL EXPOSURE DURING PREGNANCY: 75 MG, QD
     Route: 065
  101. DIPHENHYDRAMINE HYDROCHLORIDE [Suspect]
     Active Substance: DIPHENHYDRAMINE HYDROCHLORIDE
     Indication: Foetal exposure during pregnancy
     Dosage: MATERNAL EXPOSURE DURING PREGNANCY: 75 MG, QD (UNKNOWN FORMULATION)
     Route: 065
  102. DIPHENHYDRAMINE HYDROCHLORIDE [Suspect]
     Active Substance: DIPHENHYDRAMINE HYDROCHLORIDE
     Dosage: MATERNAL EXPOSURE DURING PREGNANCY: 75 MG, QD
     Route: 065
  103. DIPHENHYDRAMINE HYDROCHLORIDE [Suspect]
     Active Substance: DIPHENHYDRAMINE HYDROCHLORIDE
     Dosage: MATERNAL EXPOSURE DURING PREGNANCY: 75 MG, QD
     Route: 065
  104. DIPHENHYDRAMINE HYDROCHLORIDE [Suspect]
     Active Substance: DIPHENHYDRAMINE HYDROCHLORIDE
     Dosage: MATERNAL EXPOSURE DURING PREGNANCY: 75 MG
     Route: 065
  105. ENBREL [Suspect]
     Active Substance: ETANERCEPT
     Indication: Foetal exposure during pregnancy
     Dosage: MATERNAL EXPOSURE DURING PREGNANCY: UNK
     Route: 065
  106. FLOVENT [Suspect]
     Active Substance: FLUTICASONE PROPIONATE
     Indication: Foetal exposure during pregnancy
     Dosage: MATERNAL EXPOSURE DURING PREGNANCY: UNK
     Route: 065
  107. FLUCONAZOLE [Suspect]
     Active Substance: FLUCONAZOLE
     Indication: Foetal exposure during pregnancy
     Dosage: MATERNAL EXPOSURE DURING PREGNANCY: UNK
     Route: 065
  108. FLUTICASONE PROPIONATE\SALMETEROL XINAFOATE [Suspect]
     Active Substance: FLUTICASONE PROPIONATE\SALMETEROL XINAFOATE
     Indication: Foetal exposure during pregnancy
     Dosage: MATERNAL EXPOSURE DURING PREGNANCY: 500 MG
     Route: 065
  109. FLUTICASONE PROPIONATE\SALMETEROL XINAFOATE [Suspect]
     Active Substance: FLUTICASONE PROPIONATE\SALMETEROL XINAFOATE
     Dosage: MATERNAL EXPOSURE DURING PREGNANCY: 500 MG
     Route: 065
  110. FLUTICASONE PROPIONATE\SALMETEROL XINAFOATE [Suspect]
     Active Substance: FLUTICASONE PROPIONATE\SALMETEROL XINAFOATE
     Dosage: MATERNAL EXPOSURE DURING PREGNANCY: 500 MG, QD
     Route: 065
  111. FLUTICASONE PROPIONATE\SALMETEROL XINAFOATE [Suspect]
     Active Substance: FLUTICASONE PROPIONATE\SALMETEROL XINAFOATE
     Dosage: MATERNAL EXPOSURE DURING PREGNANCY: 500 MG, BID
     Route: 065
  112. FLUTICASONE PROPIONATE\SALMETEROL XINAFOATE [Suspect]
     Active Substance: FLUTICASONE PROPIONATE\SALMETEROL XINAFOATE
     Dosage: MATERNAL EXPOSURE DURING PREGNANCY: 500 MG, QD
     Route: 065
  113. FLUTICASONE PROPIONATE\SALMETEROL XINAFOATE [Suspect]
     Active Substance: FLUTICASONE PROPIONATE\SALMETEROL XINAFOATE
     Dosage: MATERNAL EXPOSURE DURING PREGNANCY: 500 MG
     Route: 065
  114. FLUTICASONE PROPIONATE\SALMETEROL XINAFOATE [Suspect]
     Active Substance: FLUTICASONE PROPIONATE\SALMETEROL XINAFOATE
     Dosage: MATERNAL EXPOSURE DURING PREGNANCY: 500 MG, BID
     Route: 065
  115. FLUTICASONE PROPIONATE\SALMETEROL XINAFOATE [Suspect]
     Active Substance: FLUTICASONE PROPIONATE\SALMETEROL XINAFOATE
     Dosage: MATERNAL EXPOSURE DURING PREGNANCY: 500 MG, BID
     Route: 065
  116. FLUTICASONE PROPIONATE\SALMETEROL XINAFOATE [Suspect]
     Active Substance: FLUTICASONE PROPIONATE\SALMETEROL XINAFOATE
     Dosage: MATERNAL EXPOSURE DURING PREGNANCY: 500 MG
     Route: 065
  117. FUROSEMIDE [Suspect]
     Active Substance: FUROSEMIDE
     Indication: Foetal exposure during pregnancy
     Dosage: MATERNAL EXPOSURE DURING PREGNANCY: UNK
     Route: 065
  118. GABAPENTIN [Suspect]
     Active Substance: GABAPENTIN
     Indication: Foetal exposure during pregnancy
     Dosage: MATERNAL EXPOSURE DURING PREGNANCY: UNK
     Route: 065
  119. HUMIRA [Suspect]
     Active Substance: ADALIMUMAB
     Indication: Foetal exposure during pregnancy
     Dosage: MATERNAL EXPOSURE DURING PREGNANCY: UNK (SOLUTION SUBCUTANEOUS)
     Route: 064
  120. HUMIRA [Suspect]
     Active Substance: ADALIMUMAB
     Dosage: MATERNAL EXPOSURE DURING PREGNANCY: UNK
     Route: 064
  121. HYDROMORPHONE [Suspect]
     Active Substance: HYDROMORPHONE
     Indication: Foetal exposure during pregnancy
     Dosage: MATERNAL EXPOSURE DURING PREGNANCY: UNK (UNKNOWN FORMULATION)
     Route: 065
  122. HYDROMORPHONE [Suspect]
     Active Substance: HYDROMORPHONE
     Dosage: MATERNAL EXPOSURE DURING PREGNANCY: UNK
     Route: 065
  123. HYDROMORPHONE HYDROCHLORIDE [Suspect]
     Active Substance: HYDROMORPHONE HYDROCHLORIDE
     Indication: Foetal exposure during pregnancy
     Dosage: MATERNAL EXPOSURE DURING PREGNANCY: UNK
     Route: 065
  124. HYDROMORPHONE HYDROCHLORIDE [Suspect]
     Active Substance: HYDROMORPHONE HYDROCHLORIDE
     Dosage: MATERNAL EXPOSURE DURING PREGNANCY: UNK
     Route: 065
  125. HYDROMORPHONE HYDROCHLORIDE [Suspect]
     Active Substance: HYDROMORPHONE HYDROCHLORIDE
     Indication: Foetal exposure during pregnancy
     Dosage: MATERNAL EXPOSURE DURING PREGNANCY: UNK (FORMULATION: TABLET (EXTENDED-RELEASE))
     Route: 065
  126. HYDROMORPHONE HYDROCHLORIDE [Suspect]
     Active Substance: HYDROMORPHONE HYDROCHLORIDE
     Dosage: MATERNAL EXPOSURE DURING PREGNANCY: UNK
     Route: 065
  127. KETOPROFEN [Suspect]
     Active Substance: KETOPROFEN
     Indication: Foetal exposure during pregnancy
     Dosage: MATERNAL EXPOSURE DURING PREGNANCY: UNK
     Route: 065
  128. METHYLPREDNISOLONE [Suspect]
     Active Substance: METHYLPREDNISOLONE
     Indication: Foetal exposure during pregnancy
     Dosage: MATERNAL EXPOSURE DURING PREGNANCY: UNK (UNKNOWN FORMULATION)
     Route: 065
  129. METHYLPREDNISOLONE [Suspect]
     Active Substance: METHYLPREDNISOLONE
     Dosage: MATERNAL EXPOSURE DURING PREGNANCY: 1 DOSAGE FORM
     Route: 065
  130. METHYLPREDNISOLONE ACETATE [Suspect]
     Active Substance: METHYLPREDNISOLONE ACETATE
     Indication: Foetal exposure during pregnancy
     Dosage: MATERNAL EXPOSURE DURING PREGNANCY: UNK
     Route: 065
  131. METHYLPREDNISOLONE ACETATE [Suspect]
     Active Substance: METHYLPREDNISOLONE ACETATE
     Dosage: MATERNAL EXPOSURE DURING PREGNANCY: 1 DOSAGE FORM
     Route: 065
  132. METHYLPREDNISOLONE ACETATE [Suspect]
     Active Substance: METHYLPREDNISOLONE ACETATE
     Dosage: MATERNAL EXPOSURE DURING PREGNANCY: 1 DOSAGE FORM
     Route: 065
  133. METHYLPREDNISOLONE ACETATE [Suspect]
     Active Substance: METHYLPREDNISOLONE ACETATE
     Dosage: MATERNAL EXPOSURE DURING PREGNANCY: UNK
     Route: 065
  134. METHYLPREDNISOLONE ACETATE [Suspect]
     Active Substance: METHYLPREDNISOLONE ACETATE
     Dosage: MATERNAL EXPOSURE DURING PREGNANCY: 1 DOSAGE FORM
     Route: 065
  135. METHYLPREDNISOLONE ACETATE [Suspect]
     Active Substance: METHYLPREDNISOLONE ACETATE
     Dosage: MATERNAL EXPOSURE DURING PREGNANCY: UNK (1 EVERY 1 DAYS)
     Route: 065
  136. METHYLPREDNISOLONE ACETATE [Suspect]
     Active Substance: METHYLPREDNISOLONE ACETATE
     Dosage: MATERNAL EXPOSURE DURING PREGNANCY: UNK (1 EVERY 1 DAYS)
     Route: 065
  137. METHYLPREDNISOLONE ACETATE [Suspect]
     Active Substance: METHYLPREDNISOLONE ACETATE
     Dosage: MATERNAL EXPOSURE DURING PREGNANCY: 1 DOSAGE FORM, QD (UNKNOWN FORMULATION)
     Route: 065
  138. METHYLPREDNISOLONE ACETATE [Suspect]
     Active Substance: METHYLPREDNISOLONE ACETATE
     Dosage: MATERNAL EXPOSURE DURING PREGNANCY: UNK
     Route: 065
  139. METHYLPREDNISOLONE SODIUM SUCCINATE [Suspect]
     Active Substance: METHYLPREDNISOLONE SODIUM SUCCINATE
     Indication: Foetal exposure during pregnancy
     Dosage: MATERNAL EXPOSURE DURING PREGNANCY: 1 DOSAGE FORM
     Route: 065
  140. METHYLPREDNISOLONE SODIUM PHOSPHATE [Suspect]
     Active Substance: METHYLPREDNISOLONE SODIUM PHOSPHATE
     Indication: Foetal exposure during pregnancy
     Dosage: MATERNAL EXPOSURE DURING PREGNANCY: UNK
     Route: 065
  141. MONTELUKAST SODIUM [Suspect]
     Active Substance: MONTELUKAST SODIUM
     Indication: Foetal exposure during pregnancy
     Dosage: MATERNAL EXPOSURE DURING PREGNANCY: UNK
     Route: 065
  142. MORPHINE SULFATE [Suspect]
     Active Substance: MORPHINE SULFATE
     Indication: Foetal exposure during pregnancy
     Dosage: MATERNAL EXPOSURE DURING PREGNANCY: UNK (UNKNOWN FORMULATION)
     Route: 064
  143. MORPHINE SULFATE [Suspect]
     Active Substance: MORPHINE SULFATE
     Dosage: MATERNAL EXPOSURE DURING PREGNANCY: UNK
     Route: 064
  144. MOXIFLOXACIN HYDROCHLORIDE [Suspect]
     Active Substance: MOXIFLOXACIN HYDROCHLORIDE\MOXIFLOXACIN HYDROCHLORIDE MONOHYDRATE
     Indication: Foetal exposure during pregnancy
     Dosage: MATERNAL EXPOSURE DURING PREGNANCY: UNK
     Route: 064
  145. MOXIFLOXACIN HYDROCHLORIDE [Suspect]
     Active Substance: MOXIFLOXACIN HYDROCHLORIDE\MOXIFLOXACIN HYDROCHLORIDE MONOHYDRATE
     Dosage: MATERNAL EXPOSURE DURING PREGNANCY: UNK
     Route: 065
  146. NORTRIPTYLINE [Suspect]
     Active Substance: NORTRIPTYLINE
     Indication: Foetal exposure during pregnancy
     Dosage: MATERNAL EXPOSURE DURING PREGNANCY: UNK
     Route: 065
  147. NORTRIPTYLINE HYDROCHLORIDE [Suspect]
     Active Substance: NORTRIPTYLINE HYDROCHLORIDE
     Indication: Foetal exposure during pregnancy
     Dosage: MATERNAL EXPOSURE DURING PREGNANCY: 10 MG
     Route: 065
  148. NORTRIPTYLINE HYDROCHLORIDE [Suspect]
     Active Substance: NORTRIPTYLINE HYDROCHLORIDE
     Dosage: MATERNAL EXPOSURE DURING PREGNANCY: 10 MG
     Route: 065
  149. NORTRIPTYLINE HYDROCHLORIDE [Suspect]
     Active Substance: NORTRIPTYLINE HYDROCHLORIDE
     Dosage: MATERNAL EXPOSURE DURING PREGNANCY: 10 MG
     Route: 065
  150. NORTRIPTYLINE HYDROCHLORIDE [Suspect]
     Active Substance: NORTRIPTYLINE HYDROCHLORIDE
     Dosage: MATERNAL EXPOSURE DURING PREGNANCY: UNK (UNKNOWN FORMULATION)
     Route: 065
  151. ONDANSETRON [Suspect]
     Active Substance: ONDANSETRON
     Indication: Foetal exposure during pregnancy
     Dosage: MATERNAL EXPOSURE DURING PREGNANCY: UNK
     Route: 065
  152. ORENCIA [Suspect]
     Active Substance: ABATACEPT
     Indication: Foetal exposure during pregnancy
     Dosage: MATERNAL EXPOSURE DURING PREGNANCY: 1 DOSAGE FORM, QW
     Route: 064
  153. ORENCIA [Suspect]
     Active Substance: ABATACEPT
     Dosage: MATERNAL EXPOSURE DURING PREGNANCY: UNK
     Route: 065
  154. PANTOPRAZOLE [Suspect]
     Active Substance: PANTOPRAZOLE
     Indication: Foetal exposure during pregnancy
     Dosage: MATERNAL EXPOSURE DURING PREGNANCY: UNK
     Route: 065
  155. PANTOPRAZOLE MAGNESIUM [Suspect]
     Active Substance: PANTOPRAZOLE MAGNESIUM
     Indication: Foetal exposure during pregnancy
     Dosage: MATERNAL EXPOSURE DURING PREGNANCY: UNK
     Route: 065
  156. PANTOPRAZOLE MAGNESIUM [Suspect]
     Active Substance: PANTOPRAZOLE MAGNESIUM
     Dosage: MATERNAL EXPOSURE DURING PREGNANCY: UNK (UNKNOWN FORMULATION)
     Route: 065
  157. PANTOPRAZOLE MAGNESIUM [Suspect]
     Active Substance: PANTOPRAZOLE MAGNESIUM
     Dosage: MATERNAL EXPOSURE DURING PREGNANCY: UNK
     Route: 065
  158. PANTOPRAZOLE MAGNESIUM [Suspect]
     Active Substance: PANTOPRAZOLE MAGNESIUM
     Dosage: MATERNAL EXPOSURE DURING PREGNANCY: UNK
     Route: 065
  159. PANTOPRAZOLE MAGNESIUM [Suspect]
     Active Substance: PANTOPRAZOLE MAGNESIUM
     Dosage: MATERNAL EXPOSURE DURING PREGNANCY: UNK
     Route: 065
  160. PANTOPRAZOLE MAGNESIUM [Suspect]
     Active Substance: PANTOPRAZOLE MAGNESIUM
     Dosage: MATERNAL EXPOSURE DURING PREGNANCY: UNK
     Route: 065
  161. HERBALS\PLANTAGO OVATA LEAF [Suspect]
     Active Substance: HERBALS\PLANTAGO OVATA LEAF
     Indication: Foetal exposure during pregnancy
     Dosage: MATERNAL EXPOSURE DURING PREGNANCY: UNK
     Route: 065
  162. PROGESTERONE [Suspect]
     Active Substance: PROGESTERONE
     Indication: Foetal exposure during pregnancy
     Dosage: MATERNAL EXPOSURE DURING PREGNANCY: UNK
     Route: 065
  163. PROGESTERONE [Suspect]
     Active Substance: PROGESTERONE
     Dosage: MATERNAL EXPOSURE DURING PREGNANCY: UNK (FORMULATION: GEL)
     Route: 065
  164. PROGESTERONE [Suspect]
     Active Substance: PROGESTERONE
     Dosage: MATERNAL EXPOSURE DURING PREGNANCY: UNK (FORMULATION: UNKNOWN)
     Route: 064
  165. PROGESTERONE [Suspect]
     Active Substance: PROGESTERONE
     Dosage: MATERNAL EXPOSURE DURING PREGNANCY: UNK (FORMULATION: TABLET)
     Route: 065
  166. PROGESTERONE [Suspect]
     Active Substance: PROGESTERONE
     Dosage: MATERNAL EXPOSURE DURING PREGNANCY: UNK (FORMULATION: GEL)
     Route: 065
  167. PROGESTERONE [Suspect]
     Active Substance: PROGESTERONE
     Dosage: MATERNAL EXPOSURE DURING PREGNANCY: UNK
     Route: 065
  168. PROGESTERONE [Suspect]
     Active Substance: PROGESTERONE
     Dosage: MATERNAL EXPOSURE DURING PREGNANCY: UNK
     Route: 064
  169. PROGESTERONE [Suspect]
     Active Substance: PROGESTERONE
     Dosage: MATERNAL EXPOSURE DURING PREGNANCY: UNK
     Route: 065
  170. PROGESTERONE [Suspect]
     Active Substance: PROGESTERONE
     Dosage: MATERNAL EXPOSURE DURING PREGNANCY: UNK
     Route: 065
  171. PROGESTERONE [Suspect]
     Active Substance: PROGESTERONE
     Dosage: MATERNAL EXPOSURE DURING PREGNANCY: UNK
     Route: 064
  172. PROGESTERONE [Suspect]
     Active Substance: PROGESTERONE
     Dosage: MATERNAL EXPOSURE DURING PREGNANCY: UNK
     Route: 064
  173. PROGESTERONE [Suspect]
     Active Substance: PROGESTERONE
     Dosage: MATERNAL EXPOSURE DURING PREGNANCY: UNK
     Route: 064
  174. PROGESTERONE [Suspect]
     Active Substance: PROGESTERONE
     Dosage: MATERNAL EXPOSURE DURING PREGNANCY: UNK
     Route: 064
  175. PROGESTERONE [Suspect]
     Active Substance: PROGESTERONE
     Indication: Foetal exposure during pregnancy
     Dosage: MATERNAL EXPOSURE DURING PREGNANCY: UNK
     Route: 065
  176. PROGESTERONE [Suspect]
     Active Substance: PROGESTERONE
     Dosage: MATERNAL EXPOSURE DURING PREGNANCY: UNK
     Route: 065
  177. PROGESTERONE [Suspect]
     Active Substance: PROGESTERONE
     Dosage: MATERNAL EXPOSURE DURING PREGNANCY: UNK
     Route: 065
  178. PROGESTERONE [Suspect]
     Active Substance: PROGESTERONE
     Dosage: MATERNAL EXPOSURE DURING PREGNANCY: UNK
     Route: 065
  179. PROGESTERONE [Suspect]
     Active Substance: PROGESTERONE
     Dosage: MATERNAL EXPOSURE DURING PREGNANCY: UNK
     Route: 065
  180. PROGESTERONE [Suspect]
     Active Substance: PROGESTERONE
     Dosage: MATERNAL EXPOSURE DURING PREGNANCY: UNK
     Route: 065
  181. PROGESTERONE [Suspect]
     Active Substance: PROGESTERONE
     Dosage: MATERNAL EXPOSURE DURING PREGNANCY: UNK
     Route: 065
  182. PROMETRIUM [Suspect]
     Active Substance: PROGESTERONE
     Indication: Foetal exposure during pregnancy
     Dosage: MATERNAL EXPOSURE DURING PREGNANCY: UNK
     Route: 065
  183. PROMETRIUM [Suspect]
     Active Substance: PROGESTERONE
     Dosage: MATERNAL EXPOSURE DURING PREGNANCY: UNK
     Route: 065
  184. PSYLLIUM HUSK [Suspect]
     Active Substance: PSYLLIUM HUSK
     Indication: Foetal exposure during pregnancy
     Dosage: MATERNAL EXPOSURE DURING PREGNANCY: UNK
     Route: 065
  185. QUETIAPINE FUMARATE [Suspect]
     Active Substance: QUETIAPINE FUMARATE
     Indication: Foetal exposure during pregnancy
     Dosage: MATERNAL EXPOSURE DURING PREGNANCY: UNK
     Route: 065
  186. RANITIDINE HYDROCHLORIDE [Suspect]
     Active Substance: RANITIDINE HYDROCHLORIDE
     Indication: Foetal exposure during pregnancy
     Dosage: MATERNAL EXPOSURE DURING PREGNANCY: 20 MG, QD
     Route: 065
  187. RANITIDINE HYDROCHLORIDE [Suspect]
     Active Substance: RANITIDINE HYDROCHLORIDE
     Dosage: MATERNAL EXPOSURE DURING PREGNANCY: UNK
     Route: 065
  188. RANITIDINE HYDROCHLORIDE [Suspect]
     Active Substance: RANITIDINE HYDROCHLORIDE
     Dosage: MATERNAL EXPOSURE DURING PREGNANCY: UNK
     Route: 065
  189. RANITIDINE HYDROCHLORIDE [Suspect]
     Active Substance: RANITIDINE HYDROCHLORIDE
     Dosage: MATERNAL EXPOSURE DURING PREGNANCY: 20 MG, QD
     Route: 065
  190. RANITIDINE HYDROCHLORIDE [Suspect]
     Active Substance: RANITIDINE HYDROCHLORIDE
     Dosage: MATERNAL EXPOSURE DURING PREGNANCY: 20 MG, QD
     Route: 065
  191. RANITIDINE HYDROCHLORIDE [Suspect]
     Active Substance: RANITIDINE HYDROCHLORIDE
     Dosage: MATERNAL EXPOSURE DURING PREGNANCY: UNK
     Route: 065
  192. RANITIDINE HYDROCHLORIDE [Suspect]
     Active Substance: RANITIDINE HYDROCHLORIDE
     Dosage: MATERNAL EXPOSURE DURING PREGNANCY: UNK
     Route: 065
  193. RANITIDINE HYDROCHLORIDE [Suspect]
     Active Substance: RANITIDINE HYDROCHLORIDE
     Dosage: MATERNAL EXPOSURE DURING PREGNANCY: 20 MG, QD
     Route: 065
  194. RANITIDINE HYDROCHLORIDE [Suspect]
     Active Substance: RANITIDINE HYDROCHLORIDE
     Dosage: MATERNAL EXPOSURE DURING PREGNANCY: 20 MG, QD
     Route: 065
  195. CETIRIZINE HYDROCHLORIDE [Suspect]
     Active Substance: CETIRIZINE HYDROCHLORIDE
     Indication: Foetal exposure during pregnancy
     Dosage: MATERNAL EXPOSURE DURING PREGNANCY: 20 MG, QD
     Route: 065
  196. CETIRIZINE HYDROCHLORIDE [Suspect]
     Active Substance: CETIRIZINE HYDROCHLORIDE
     Dosage: MATERNAL EXPOSURE DURING PREGNANCY: 20 MG, QD (UNKNOWN FORMULATION)
     Route: 065
  197. CETIRIZINE HYDROCHLORIDE [Suspect]
     Active Substance: CETIRIZINE HYDROCHLORIDE
     Dosage: MATERNAL EXPOSURE DURING PREGNANCY: 20 MG, QD
     Route: 065
  198. REMICADE [Suspect]
     Active Substance: INFLIXIMAB
     Indication: Foetal exposure during pregnancy
     Dosage: MATERNAL EXPOSURE DURING PREGNANCY: UNK
     Route: 064
  199. REMICADE [Suspect]
     Active Substance: INFLIXIMAB
     Dosage: MATERNAL EXPOSURE DURING PREGNANCY: UNK
     Route: 064
  200. RESTORIL [Suspect]
     Active Substance: TEMAZEPAM
     Indication: Foetal exposure during pregnancy
     Dosage: MATERNAL EXPOSURE DURING PREGNANCY: UNK
     Route: 065
  201. RESTORIL [Suspect]
     Active Substance: TEMAZEPAM
     Dosage: MATERNAL EXPOSURE DURING PREGNANCY: UNK
     Route: 065
  202. ALBUTEROL [Suspect]
     Active Substance: ALBUTEROL
     Indication: Foetal exposure during pregnancy
     Dosage: MATERNAL EXPOSURE DURING PREGNANCY: UNK
     Route: 065
  203. ALBUTEROL [Suspect]
     Active Substance: ALBUTEROL
     Dosage: MATERNAL EXPOSURE DURING PREGNANCY: UNK
     Route: 065
  204. ALBUTEROL [Suspect]
     Active Substance: ALBUTEROL
     Dosage: MATERNAL EXPOSURE DURING PREGNANCY: UNK
     Route: 065
  205. ALBUTEROL [Suspect]
     Active Substance: ALBUTEROL
     Dosage: MATERNAL EXPOSURE DURING PREGNANCY: UNK
     Route: 065
  206. SENNA LEAF [Suspect]
     Active Substance: SENNA LEAF
     Indication: Foetal exposure during pregnancy
     Dosage: MATERNAL EXPOSURE DURING PREGNANCY: UNK (DROPS ORAL)
     Route: 064
  207. SENNA LEAF [Suspect]
     Active Substance: SENNA LEAF
     Dosage: MATERNAL EXPOSURE DURING PREGNANCY: UNK (UNKNOWN FORMULATION)
     Route: 065
  208. SENNA LEAF [Suspect]
     Active Substance: SENNA LEAF
     Dosage: MATERNAL EXPOSURE DURING PREGNANCY: UNK
     Route: 065
  209. SENNA LEAF [Suspect]
     Active Substance: SENNA LEAF
     Dosage: MATERNAL EXPOSURE DURING PREGNANCY: UNK
     Route: 064
  210. SENNA LEAF [Suspect]
     Active Substance: SENNA LEAF
     Dosage: MATERNAL EXPOSURE DURING PREGNANCY: UNK
     Route: 065
  211. SENNA LEAF [Suspect]
     Active Substance: SENNA LEAF
     Dosage: MATERNAL EXPOSURE DURING PREGNANCY: UNK (UNKNOWN FORMULATION)
     Route: 065
  212. SENNA LEAF [Suspect]
     Active Substance: SENNA LEAF
     Dosage: MATERNAL EXPOSURE DURING PREGNANCY: UNK
     Route: 065
  213. SENNOSIDES A AND B [Suspect]
     Active Substance: SENNOSIDES A AND B
     Indication: Foetal exposure during pregnancy
     Dosage: MATERNAL EXPOSURE DURING PREGNANCY: 8.6 MG
     Route: 065
  214. SENNOSIDES A AND B [Suspect]
     Active Substance: SENNOSIDES A AND B
     Dosage: MATERNAL EXPOSURE DURING PREGNANCY: 8.6 MG
     Route: 065
  215. SENNOSIDES A AND B [Suspect]
     Active Substance: SENNOSIDES A AND B
     Dosage: MATERNAL EXPOSURE DURING PREGNANCY: 8.5 MG
     Route: 065
  216. SENNOSIDES A AND B [Suspect]
     Active Substance: SENNOSIDES A AND B
     Dosage: MATERNAL EXPOSURE DURING PREGNANCY: UNK
     Route: 065
  217. SENNOSIDES A AND B [Suspect]
     Active Substance: SENNOSIDES A AND B
     Dosage: MATERNAL EXPOSURE DURING PREGNANCY: 8.5 MG
     Route: 065
  218. SENNOSIDES A AND B [Suspect]
     Active Substance: SENNOSIDES A AND B
     Dosage: MATERNAL EXPOSURE DURING PREGNANCY: UNK
     Route: 065
  219. SENOKOT [Suspect]
     Active Substance: SENNOSIDES
     Indication: Foetal exposure during pregnancy
     Dosage: MATERNAL EXPOSURE DURING PREGNANCY: UNK
     Route: 065
  220. SENOKOT [Suspect]
     Active Substance: SENNOSIDES
     Dosage: MATERNAL EXPOSURE DURING PREGNANCY: UNK
     Route: 065
  221. SINGULAIR [Suspect]
     Active Substance: MONTELUKAST SODIUM
     Indication: Foetal exposure during pregnancy
     Dosage: MATERNAL EXPOSURE DURING PREGNANCY: UNK
     Route: 065
  222. SODIUM PICOSULFATE [Suspect]
     Active Substance: SODIUM PICOSULFATE
     Indication: Foetal exposure during pregnancy
     Dosage: MATERNAL EXPOSURE DURING PREGNANCY: UNK
     Route: 065
  223. PANTOPRAZOLE MAGNESIUM [Suspect]
     Active Substance: PANTOPRAZOLE MAGNESIUM
     Indication: Foetal exposure during pregnancy
     Dosage: MATERNAL EXPOSURE DURING PREGNANCY: UNK (TABLET (ENTERIC-COATED))
     Route: 065
  224. TEMAZEPAM [Suspect]
     Active Substance: TEMAZEPAM
     Indication: Foetal exposure during pregnancy
     Dosage: MATERNAL EXPOSURE DURING PREGNANCY: UNK
     Route: 065
  225. TOCILIZUMAB [Suspect]
     Active Substance: TOCILIZUMAB
     Indication: Foetal exposure during pregnancy
     Dosage: MATERNAL EXPOSURE DURING PREGNANCY: UNK
     Route: 064
  226. TOCILIZUMAB [Suspect]
     Active Substance: TOCILIZUMAB
     Dosage: MATERNAL EXPOSURE DURING PREGNANCY: UNK
     Route: 065
  227. TOCILIZUMAB [Suspect]
     Active Substance: TOCILIZUMAB
     Dosage: MATERNAL EXPOSURE DURING PREGNANCY: 500 MG, BID
     Route: 064
  228. TYLENOL [Suspect]
     Active Substance: ACETAMINOPHEN
     Indication: Foetal exposure during pregnancy
     Dosage: MATERNAL EXPOSURE DURING PREGNANCY: UNK
     Route: 065
  229. VENLAFAXINE HYDROCHLORIDE [Suspect]
     Active Substance: VENLAFAXINE HYDROCHLORIDE
     Indication: Foetal exposure during pregnancy
     Dosage: MATERNAL EXPOSURE DURING PREGNANCY: UNK
     Route: 065
  230. VENTOLIN [Suspect]
     Active Substance: ALBUTEROL SULFATE
     Indication: Foetal exposure during pregnancy
     Dosage: MATERNAL EXPOSURE DURING PREGNANCY: UNK
     Route: 065
  231. VENTOLIN [Suspect]
     Active Substance: ALBUTEROL SULFATE
     Dosage: MATERNAL EXPOSURE DURING PREGNANCY: UNK
     Route: 065
  232. WELLBUTRIN [Suspect]
     Active Substance: BUPROPION HYDROCHLORIDE
     Indication: Foetal exposure during pregnancy
     Dosage: MATERNAL EXPOSURE DURING PREGNANCY: UNK
     Route: 065
  233. WELLBUTRIN [Suspect]
     Active Substance: BUPROPION HYDROCHLORIDE
     Dosage: MATERNAL EXPOSURE DURING PREGNANCY: UNK
     Route: 065
  234. WELLBUTRIN [Suspect]
     Active Substance: BUPROPION HYDROCHLORIDE
     Dosage: MATERNAL EXPOSURE DURING PREGNANCY: UNK
     Route: 065
  235. WELLBUTRIN [Suspect]
     Active Substance: BUPROPION HYDROCHLORIDE
     Dosage: MATERNAL EXPOSURE DURING PREGNANCY: 150 MG
     Route: 065
  236. WELLBUTRIN [Suspect]
     Active Substance: BUPROPION HYDROCHLORIDE
     Dosage: MATERNAL EXPOSURE DURING PREGNANCY: UNK
     Route: 065
  237. WELLBUTRIN [Suspect]
     Active Substance: BUPROPION HYDROCHLORIDE
     Dosage: MATERNAL EXPOSURE DURING PREGNANCY: 150 MG
     Route: 065
  238. WELLBUTRIN [Suspect]
     Active Substance: BUPROPION HYDROCHLORIDE
     Dosage: MATERNAL EXPOSURE DURING PREGNANCY: UNK
     Route: 065
  239. WELLBUTRIN [Suspect]
     Active Substance: BUPROPION HYDROCHLORIDE
     Dosage: MATERNAL EXPOSURE DURING PREGNANCY: 150 MG (TABLET (EXTENDED-RELEASE))
     Route: 065
  240. ZOPICLONE [Suspect]
     Active Substance: ZOPICLONE
     Indication: Foetal exposure during pregnancy
     Dosage: MATERNAL EXPOSURE DURING PREGNANCY: UNK
     Route: 065
  241. VITAMIN C [Concomitant]
     Active Substance: ASCORBIC ACID
     Indication: Foetal exposure during pregnancy
     Dosage: MATERNAL EXPOSURE DURING PREGNANCY: UNK
     Route: 065
  242. DOLUTEGRAVIR SODIUM [Concomitant]
     Active Substance: DOLUTEGRAVIR SODIUM
     Indication: Foetal exposure during pregnancy
     Dosage: MATERNAL EXPOSURE DURING PREGNANCY: UNK
     Route: 065

REACTIONS (1)
  - Foetal death [Fatal]
